FAERS Safety Report 6752513-5 (Version None)
Quarter: 2010Q2

REPORT INFORMATION
  Report Type: 
  Country: None (occurrence: None)
  Receive Date: 20100601
  Receipt Date: 20100601
  Transmission Date: 20101027
  Serious: No
  Sender: FDA-Public Use
  Company Number: None

PATIENT
  Age: 65 Year
  Sex: Female
  Weight: 56.6996 kg

DRUGS (1)
  1. NASALCROM [Suspect]
     Dosage: 1 METERED SPRAY TWICE A DAY NASAL
     Route: 045
     Dates: start: 20100519, end: 20100524

REACTIONS (3)
  - BALANCE DISORDER [None]
  - NAUSEA [None]
  - VERTIGO [None]
